FAERS Safety Report 7668907-X (Version None)
Quarter: 2011Q3

REPORT INFORMATION
  Report Type: 
  Country: None (occurrence: None)
  Receive Date: 20110808
  Receipt Date: 20110802
  Transmission Date: 20111222
  Serious: Yes (Hospitalization)
  Sender: FDA-Public Use
  Company Number: US-PERRIGO-11US006241

PATIENT
  Age: 38 Year
  Sex: Male

DRUGS (2)
  1. ACETAMINOPHEN [Suspect]
     Indication: SUICIDE ATTEMPT
     Dosage: 48 G, SINGLE
     Route: 048
  2. CONTRAC RAT POISON [Suspect]
     Indication: SUICIDE ATTEMPT
     Dosage: 17 PACKETS, SINGLE
     Route: 048

REACTIONS (11)
  - GASTROINTESTINAL NECROSIS [None]
  - ABDOMINAL PAIN [None]
  - ODYNOPHAGIA [None]
  - LETHARGY [None]
  - OVERDOSE [None]
  - VOMITING [None]
  - CONFUSIONAL STATE [None]
  - HEPATIC ENZYME INCREASED [None]
  - NAUSEA [None]
  - OESOPHAGEAL ULCER [None]
  - BLOOD CREATININE INCREASED [None]
